FAERS Safety Report 25876838 (Version 1)
Quarter: 2025Q4

REPORT INFORMATION
  Report Type: Spontaneous
  Country: US (occurrence: US)
  Receive Date: 20251003
  Receipt Date: 20251003
  Transmission Date: 20260117
  Serious: No
  Sender: Haleon PLC
  Company Number: US-HALEON-2265856

PATIENT

DRUGS (1)
  1. GAS-X ULTIMATE STRENGTH SOFTGELS [Suspect]
     Active Substance: DIMETHICONE
     Indication: Dyspepsia

REACTIONS (2)
  - Drug effective for unapproved indication [Unknown]
  - Product use in unapproved indication [Unknown]
